FAERS Safety Report 24825457 (Version 4)
Quarter: 2025Q1

REPORT INFORMATION
  Report Type: Report from Study
  Country: US (occurrence: US)
  Receive Date: 20250109
  Receipt Date: 20250218
  Transmission Date: 20250408
  Serious: Yes (Other)
  Sender: SUNOVION
  Company Number: US-SUMITOMO PHARMA SWITZERLAND GMBH-2024SPA006725

PATIENT

DRUGS (7)
  1. ORGOVYX [Suspect]
     Active Substance: RELUGOLIX
     Indication: Prostate cancer
     Dosage: 360 MG, SINGLE
     Route: 048
     Dates: start: 20241121, end: 20241121
  2. ORGOVYX [Suspect]
     Active Substance: RELUGOLIX
     Dosage: 120 MG, QD
     Route: 048
     Dates: start: 20241122
  3. GABAPENTIN [Concomitant]
     Active Substance: GABAPENTIN
     Route: 065
  4. FLUTICASONE PROPIONATE [Concomitant]
     Active Substance: FLUTICASONE PROPIONATE
     Route: 045
  5. SENNA [Concomitant]
     Active Substance: SENNOSIDES
     Route: 065
  6. BISACODYL [Concomitant]
     Active Substance: BISACODYL
     Route: 065
  7. DOCUSATE SODIUM [Concomitant]
     Active Substance: DOCUSATE SODIUM
     Route: 065

REACTIONS (8)
  - Prostatectomy [Unknown]
  - Incontinence [Unknown]
  - Irritability [Unknown]
  - Constipation [Unknown]
  - Hyperhidrosis [Unknown]
  - Weight increased [Unknown]
  - Insomnia [Unknown]
  - Hot flush [Unknown]
